FAERS Safety Report 4574444-1 (Version None)
Quarter: 2005Q1

REPORT INFORMATION
  Report Type: 
  Country: None (occurrence: None)
  Receive Date: 20050204
  Receipt Date: 20050122
  Transmission Date: 20050727
  Serious: Yes (Hospitalization, Disabling, Other)
  Sender: FDA-Public Use
  Company Number: 2004111620

PATIENT
  Age: 73 Year
  Sex: Female
  Weight: 63.9572 kg

DRUGS (9)
  1. CELEBREX [Suspect]
     Indication: OSTEOARTHRITIS
     Dosage: 200 MG (200 MG, 1 AS NECESSARY), ORAL
     Route: 048
     Dates: start: 20040602, end: 20040903
  2. BUPROPION HYDROCHLORIDE [Suspect]
     Indication: DEPRESSION
     Dosage: SEE IMAGE
     Dates: start: 19960101
  3. BUPROPION HYDROCHLORIDE [Suspect]
     Indication: SMOKER
     Dosage: SEE IMAGE
     Dates: start: 19960101
  4. BUPROPION HYDROCHLORIDE [Suspect]
     Indication: DEPRESSION
     Dosage: SEE IMAGE
     Dates: start: 20040101
  5. BUPROPION HYDROCHLORIDE [Suspect]
     Indication: SMOKER
     Dosage: SEE IMAGE
     Dates: start: 20040101
  6. BISOPROLOL FUMARATE AND HYDROCHLOROTHIAZIDE [Concomitant]
  7. NIFEDIPINE [Concomitant]
  8. DIAZEPAM [Concomitant]
  9. PROPACET 100 [Concomitant]

REACTIONS (18)
  - ABDOMINAL PAIN LOWER [None]
  - ABDOMINAL TENDERNESS [None]
  - ASTHENIA [None]
  - CEREBROVASCULAR ACCIDENT [None]
  - CONSTIPATION [None]
  - DIASTOLIC DYSFUNCTION [None]
  - DISORIENTATION [None]
  - FALL [None]
  - HYPERREFLEXIA [None]
  - MENINGIOMA [None]
  - PERIPHERAL COLDNESS [None]
  - PETECHIAE [None]
  - PYURIA [None]
  - RASH [None]
  - SOMNOLENCE [None]
  - TREATMENT NONCOMPLIANCE [None]
  - URINARY TRACT INFECTION [None]
  - VASCULITIS [None]
